FAERS Safety Report 6307468-4 (Version None)
Quarter: 2009Q3

REPORT INFORMATION
  Report Type: 
  Country: None (occurrence: None)
  Receive Date: 20090813
  Receipt Date: 20090806
  Transmission Date: 20100115
  Serious: Yes (Death, Hospitalization)
  Sender: FDA-Public Use
  Company Number: US-BRISTOL-MYERS SQUIBB COMPANY-13939210

PATIENT
  Age: 51 Year
  Sex: Female

DRUGS (4)
  1. DASATINIB [Suspect]
     Indication: BREAST CANCER
     Dosage: DOSE LVEL 2 DASATINIB 90 MG
     Route: 048
     Dates: start: 20070527
  2. GEMZAR [Suspect]
     Indication: BREAST CANCER
     Dosage: LAST DOSE:27SEP07 (800MG/M2)
     Dates: start: 20070527, end: 20070927
  3. AMLODIPINE BESYLATE [Concomitant]
  4. TOPROL-XL [Concomitant]

REACTIONS (6)
  - CONFUSIONAL STATE [None]
  - DEHYDRATION [None]
  - DIARRHOEA [None]
  - NAUSEA [None]
  - THROMBOTIC THROMBOCYTOPENIC PURPURA [None]
  - VOMITING [None]
